FAERS Safety Report 6299660-2 (Version None)
Quarter: 2009Q3

REPORT INFORMATION
  Report Type: 
  Country: None (occurrence: None)
  Receive Date: 20090806
  Receipt Date: 20090731
  Transmission Date: 20100115
  Serious: Yes (Other)
  Sender: FDA-Public Use
  Company Number: US-AVENTIS-200916759US

PATIENT
  Sex: Female

DRUGS (4)
  1. LANTUS [Suspect]
     Route: 058
  2. OPTICLIK (INSULIN INJECTION PEN) [Suspect]
  3. GLUCOPHAGE [Concomitant]
  4. AMOXICILLIN + CLAVULANATE POTASSIUM [Concomitant]
     Dates: start: 20090701

REACTIONS (5)
  - ANIMAL BITE [None]
  - BLOOD GLUCOSE INCREASED [None]
  - CYST [None]
  - DEMENTIA ALZHEIMER'S TYPE [None]
  - SECRETION DISCHARGE [None]
